FAERS Safety Report 7442808-4 (Version None)
Quarter: 2011Q2

REPORT INFORMATION
  Report Type: 
  Country: None (occurrence: None)
  Receive Date: 20110428
  Receipt Date: 20110421
  Transmission Date: 20111010
  Serious: Yes (Hospitalization, Other)
  Sender: FDA-Public Use
  Company Number: US-EISAI INC-E2020-09034-SPO-US

PATIENT
  Sex: Female

DRUGS (7)
  1. ARICEPT [Suspect]
     Route: 048
     Dates: start: 20110401
  2. CALCIUM [Concomitant]
  3. ACETYLSALICYLIC ACID SRT [Concomitant]
  4. ARICEPT [Suspect]
     Route: 048
  5. ZOLOFT [Concomitant]
     Indication: DEPRESSION
  6. CENTRUM SILVER ADULT 50 PLUS [Suspect]
     Dosage: 2500 IU
     Route: 048
  7. BENICAR [Concomitant]

REACTIONS (4)
  - INSOMNIA [None]
  - TRANSIENT ISCHAEMIC ATTACK [None]
  - BLOOD IRON DECREASED [None]
  - BLOOD SODIUM DECREASED [None]
